FAERS Safety Report 18601528 (Version 3)
Quarter: 2020Q4

REPORT INFORMATION
  Report Type: Spontaneous
  Country: US (occurrence: US)
  Receive Date: 20201210
  Receipt Date: 20201221
  Transmission Date: 20210114
  Serious: No
  Sender: FDA-Public Use
  Company Number: US-PFIZER INC-2020355483

PATIENT
  Age: 71 Year
  Sex: Female

DRUGS (2)
  1. VORICONAZOLE. [Suspect]
     Active Substance: VORICONAZOLE
     Dosage: 300 MG, 2X/DAY (300 MG PO (ORALLY) TWICE A DAY ON AN EMPTY STOMACH)
     Route: 048
  2. VORICONAZOLE. [Suspect]
     Active Substance: VORICONAZOLE
     Dosage: 400 MG, 2X/DAY (2 TABLETS ORALLY EVERY 12 HOURS)
     Route: 048

REACTIONS (2)
  - Off label use [Unknown]
  - Cough [Not Recovered/Not Resolved]
